FAERS Safety Report 8922372 (Version 1)
Quarter: 2012Q4

REPORT INFORMATION
  Report Type: 
  Country: AU (occurrence: AU)
  Receive Date: 20121123
  Receipt Date: 20121123
  Transmission Date: 20130627
  Serious: Yes (Hospitalization)
  Sender: FDA-Public Use
  Company Number: PHHY2012AU105776

PATIENT
  Sex: Female

DRUGS (2)
  1. CLOZARIL (CLOZAPINE) [Suspect]
     Dosage: 400 mg, UNK
     Dates: start: 20020906
  2. CLOZARIL (CLOZAPINE) [Suspect]
     Dosage: 375 mg, UNK

REACTIONS (2)
  - Schizophrenia [Unknown]
  - Antipsychotic drug level increased [Unknown]
